FAERS Safety Report 4840368-5 (Version None)
Quarter: 2005Q4

REPORT INFORMATION
  Report Type: 
  Country: None (occurrence: None)
  Receive Date: 20051025
  Receipt Date: 20041129
  Transmission Date: 20060501
  Serious: Yes (Hospitalization)
  Sender: FDA-Public Use
  Company Number: 2004-BP-12557BP

PATIENT
  Sex: Female

DRUGS (1)
  1. COMBIVENT [Suspect]
     Indication: CHRONIC OBSTRUCTIVE PULMONARY DISEASE
     Dosage: 10 PUF (SEE TEXT),IH
     Dates: start: 20020101

REACTIONS (4)
  - BRONCHOSPASM [None]
  - COUGH [None]
  - DYSPNOEA [None]
  - THERAPEUTIC RESPONSE DECREASED [None]
